FAERS Safety Report 17668519 (Version 1)
Quarter: 2020Q2

REPORT INFORMATION
  Report Type: Spontaneous
  Country: CA (occurrence: CA)
  Receive Date: 20200415
  Receipt Date: 20200415
  Transmission Date: 20200713
  Serious: Yes (Other)
  Sender: FDA-Public Use
  Company Number: CA-OCTA-ALB00520CA

PATIENT
  Age: 92 Year
  Sex: Female

DRUGS (3)
  1. RED BLOOD CELLS [Concomitant]
     Active Substance: HUMAN RED BLOOD CELL
     Indication: PRODUCT USED FOR UNKNOWN INDICATION
     Dosage: 155 (NO UNIT) NOT SURE IF THIS IS A VOLUME IN ML
     Dates: start: 20200319
  2. OCTALBINE [Suspect]
     Active Substance: ALBUMIN HUMAN
     Indication: BLOOD ALBUMIN ABNORMAL
     Dosage: PRE-TRANSFUSION HAEMOGLOBIN
     Route: 042
     Dates: start: 20200319, end: 20200319
  3. TYLENOL [Concomitant]
     Active Substance: ACETAMINOPHEN
     Indication: PREMEDICATION
     Route: 048
     Dates: start: 20200319

REACTIONS (6)
  - Oxygen saturation decreased [Unknown]
  - Nausea [Unknown]
  - Throat tightness [Unknown]
  - Dyspnoea [Unknown]
  - Vomiting [Unknown]
  - Transfusion-related circulatory overload [Unknown]

NARRATIVE: CASE EVENT DATE: 20200319
